FAERS Safety Report 4269694-8 (Version None)
Quarter: 2004Q1

REPORT INFORMATION
  Report Type: 
  Country: None (occurrence: None)
  Receive Date: 20040112
  Receipt Date: 20031229
  Transmission Date: 20041129
  Serious: Yes (Hospitalization, Other)
  Sender: FDA-Public Use
  Company Number: 2003127112

PATIENT
  Age: 56 Year
  Sex: Female

DRUGS (11)
  1. AMLODIPINE [Suspect]
     Indication: ILL-DEFINED DISORDER
     Dosage: ORAL
     Route: 048
     Dates: start: 20030423
  2. FUROSEMIDE [Suspect]
     Indication: ILL-DEFINED DISORDER
     Dosage: ORAL
     Route: 048
     Dates: start: 20030423
  3. ANTITHYMOCYTE IMMUNOGLOBULIN (ANTITHYMOCYTE IMMUNOGLOBULIN) [Suspect]
     Indication: ILL-DEFINED DISORDER
     Dosage: INTRAVENOUS
     Route: 042
     Dates: start: 20030419
  4. TACROLIMUS (TACROLIMUS) [Suspect]
     Indication: ILL-DEFINED DISORDER
     Dosage: 9 MG (BID), ORAL
     Route: 048
     Dates: start: 20030419
  5. PREDNISONE [Concomitant]
  6. MYCOPHENOLATE MOFETIL [Concomitant]
  7. SOTALOL HCL [Concomitant]
  8. GAVISCON (SODIUM BICARBONATE, SODIUM ALGINATE) [Concomitant]
  9. LOSARTAN POTASSIUM [Concomitant]
  10. MACROGOL [Concomitant]
  11. OMEPRAZOLE [Concomitant]

REACTIONS (3)
  - ALANINE AMINOTRANSFERASE INCREASED [None]
  - ASPARTATE AMINOTRANSFERASE INCREASED [None]
  - LABORATORY TEST ABNORMAL [None]
